FAERS Safety Report 11788405 (Version 1)
Quarter: 2015Q4

REPORT INFORMATION
  Report Type: Report from Study
  Country: US (occurrence: US)
  Receive Date: 20151201
  Receipt Date: 20151201
  Transmission Date: 20160305
  Serious: Yes (Death, Hospitalization)
  Sender: FDA-Public Use
  Company Number: US-ROCHE-1666106

PATIENT
  Age: 71 Year
  Sex: Male

DRUGS (3)
  1. DOCETAXEL. [Suspect]
     Active Substance: DOCETAXEL
     Indication: NON-SMALL CELL LUNG CANCER
     Dosage: OVER 60 MIN ON DAY 1
     Route: 042
     Dates: start: 20090507
  2. BEVACIZUMAB [Suspect]
     Active Substance: BEVACIZUMAB
     Indication: NON-SMALL CELL LUNG CANCER
     Dosage: OVER 30-90 MIN ON DAY 1 (LAST DOSE ADMINISTRATION PRIOR TO SAE: 04/JUN/2009)
     Route: 042
     Dates: start: 20090507
  3. CISPLATIN. [Suspect]
     Active Substance: CISPLATIN
     Indication: NON-SMALL CELL LUNG CANCER
     Dosage: OVER 60 MIN ON DAY 1
     Route: 042
     Dates: start: 20090507

REACTIONS (4)
  - Depression [Unknown]
  - Hypoxia [Fatal]
  - Dyspnoea [Unknown]
  - Decreased appetite [Fatal]

NARRATIVE: CASE EVENT DATE: 20090610
